FAERS Safety Report 10249927 (Version 1)
Quarter: 2014Q2

REPORT INFORMATION
  Report Type: Report from Study
  Country: US (occurrence: US)
  Receive Date: 20140620
  Receipt Date: 20140620
  Transmission Date: 20141212
  Serious: Yes (Hospitalization)
  Sender: FDA-Public Use
  Company Number: US-MYLANLABS-2014S1014146

PATIENT
  Age: 73 Year
  Sex: Female
  Weight: 94.71 kg

DRUGS (17)
  1. DICYCLOMINE [Suspect]
     Indication: IRRITABLE BOWEL SYNDROME
     Route: 048
     Dates: start: 201309
  2. BLINDED STUDY MEDICATION [Suspect]
     Indication: OSTEOARTHRITIS
     Dates: start: 20140220
  3. BLINDED STUDY MEDICATION [Suspect]
     Indication: RHEUMATOID ARTHRITIS
     Dates: start: 20140220
  4. TRAMADOL [Suspect]
     Indication: OSTEOARTHRITIS
     Route: 048
     Dates: start: 2011
  5. FERGON [Suspect]
     Indication: MINERAL SUPPLEMENTATION
     Route: 048
     Dates: start: 2000
  6. NEXIUM [Concomitant]
     Dates: start: 20140220
  7. HYDROCHLOROTHIAZIDE WITH TRIAMTERENE [Concomitant]
  8. RAMIPRIL [Concomitant]
  9. LOVASTATIN [Concomitant]
  10. GLIPIZIDE EXTENDED-RELEASE [Concomitant]
  11. METFORMIN [Concomitant]
  12. SEPTRA DS [Concomitant]
  13. PREMARIN [Concomitant]
     Route: 061
  14. CHROMIUM [Concomitant]
  15. CINNAMON /01647501/ [Concomitant]
  16. DOCUSATE [Concomitant]
  17. TEARS PLUS [Concomitant]

REACTIONS (1)
  - Small intestinal obstruction [Recovered/Resolved]
